FAERS Safety Report 6338054-8 (Version None)
Quarter: 2009Q3

REPORT INFORMATION
  Report Type: 
  Country: None (occurrence: None)
  Receive Date: 20090902
  Receipt Date: 20090824
  Transmission Date: 20100115
  Serious: Yes (Other)
  Sender: FDA-Public Use
  Company Number: PHHY2009CA36700

PATIENT
  Sex: Male

DRUGS (1)
  1. ACLASTA [Suspect]
     Indication: OSTEOPOROSIS
     Dosage: 5 MG/100 ML
     Dates: start: 20090820

REACTIONS (9)
  - CHROMATURIA [None]
  - CONJUNCTIVITIS [None]
  - EXOPHTHALMOS [None]
  - HEADACHE [None]
  - HYPERCHLORHYDRIA [None]
  - INFLUENZA LIKE ILLNESS [None]
  - MYALGIA [None]
  - OCULAR HYPERAEMIA [None]
  - PYREXIA [None]
